FAERS Safety Report 15192050 (Version 3)
Quarter: 2018Q3

REPORT INFORMATION
  Report Type: Spontaneous
  Country: PY (occurrence: PY)
  Receive Date: 20180724
  Receipt Date: 20180831
  Transmission Date: 20181010
  Serious: Yes (Other)
  Sender: FDA-Public Use
  Company Number: PHHY2018PY052134

PATIENT
  Age: 35 Year
  Sex: Male

DRUGS (1)
  1. TASIGNA [Suspect]
     Active Substance: NILOTINIB
     Indication: CHRONIC MYELOID LEUKAEMIA
     Dosage: 600 MG, QD
     Route: 048

REACTIONS (7)
  - Auditory disorder [Unknown]
  - Central nervous system leukaemia [Unknown]
  - Sinusitis [Unknown]
  - Nervous system disorder [Unknown]
  - Blast crisis in myelogenous leukaemia [Unknown]
  - Optic neuritis [Unknown]
  - Visual impairment [Unknown]

NARRATIVE: CASE EVENT DATE: 201806
